FAERS Safety Report 14903599 (Version 10)
Quarter: 2018Q4

REPORT INFORMATION
  Report Type: Spontaneous
  Country: US (occurrence: US)
  Receive Date: 20180516
  Receipt Date: 20181024
  Transmission Date: 20190204
  Serious: No
  Sender: FDA-Public Use
  Company Number: US-VIFOR (INTERNATIONAL) INC.-VIT-2018-04478

PATIENT
  Sex: Female
  Weight: 70.82 kg

DRUGS (10)
  1. VELTASSA [Suspect]
     Active Substance: PATIROMER
     Route: 048
     Dates: start: 2018
  2. HYDROCODONE/ACETAMINOPHEN [Concomitant]
     Active Substance: ACETAMINOPHEN\HYDROCODONE
     Indication: BACK PAIN
  3. VELTASSA [Suspect]
     Active Substance: PATIROMER
     Indication: HYPERKALAEMIA
     Route: 048
     Dates: start: 20180419
  4. VELTASSA [Suspect]
     Active Substance: PATIROMER
     Route: 048
     Dates: start: 20180525, end: 201808
  5. PREDNISONE. [Suspect]
     Active Substance: PREDNISONE
  6. MOMETASONE FUROATE. [Concomitant]
     Active Substance: MOMETASONE FUROATE
  7. HYDROXYZINE HCL [Concomitant]
     Active Substance: HYDROXYZINE HYDROCHLORIDE
  8. ACETAMINOPHEN. [Concomitant]
     Active Substance: ACETAMINOPHEN
  9. HYDROCORTISONE. [Concomitant]
     Active Substance: HYDROCORTISONE
  10. TACROLIMUS. [Concomitant]
     Active Substance: TACROLIMUS

REACTIONS (10)
  - Fatigue [Recovering/Resolving]
  - Malaise [Recovered/Resolved]
  - Inappropriate schedule of product administration [Unknown]
  - Constipation [Recovering/Resolving]
  - Headache [Recovering/Resolving]
  - Feeling abnormal [Recovering/Resolving]
  - Abdominal discomfort [Recovering/Resolving]
  - Treatment noncompliance [Recovering/Resolving]
  - Asthenia [Recovering/Resolving]
  - Blood iron decreased [Recovering/Resolving]

NARRATIVE: CASE EVENT DATE: 2018
